FAERS Safety Report 6509861-3 (Version None)
Quarter: 2009Q4

REPORT INFORMATION
  Report Type: 
  Country: None (occurrence: None)
  Receive Date: 20091217
  Receipt Date: 20091211
  Transmission Date: 20100525
  Serious: Yes (Death, Life-Threatening)
  Sender: FDA-Public Use
  Company Number: 2009US003602

PATIENT
  Age: 19 Day
  Sex: Male
  Weight: 1 kg

DRUGS (16)
  1. AMBISOME [Suspect]
     Indication: PERITONITIS
     Dosage: 1.8 MG, UID/QD, IV NOS
     Route: 042
     Dates: start: 20090914, end: 20090922
  2. MEROPENEM [Suspect]
     Indication: PERITONITIS
     Dosage: 15 MG, UID;QD, IV NOS; 32 MG, UID/QD; 15 MG, UID/QD
     Route: 042
     Dates: start: 20090910, end: 20090918
  3. MEROPENEM [Suspect]
     Indication: PYREXIA
     Dosage: 15 MG, UID;QD, IV NOS; 32 MG, UID/QD; 15 MG, UID/QD
     Route: 042
     Dates: start: 20090910, end: 20090918
  4. MEROPENEM [Suspect]
     Indication: PERITONITIS
     Dosage: 15 MG, UID;QD, IV NOS; 32 MG, UID/QD; 15 MG, UID/QD
     Route: 042
     Dates: start: 20090918, end: 20090920
  5. MEROPENEM [Suspect]
     Indication: PYREXIA
     Dosage: 15 MG, UID;QD, IV NOS; 32 MG, UID/QD; 15 MG, UID/QD
     Route: 042
     Dates: start: 20090918, end: 20090920
  6. MEROPENEM [Suspect]
     Indication: PERITONITIS
     Dosage: 15 MG, UID;QD, IV NOS; 32 MG, UID/QD; 15 MG, UID/QD
     Route: 042
     Dates: start: 20090921, end: 20090922
  7. MEROPENEM [Suspect]
     Indication: PYREXIA
     Dosage: 15 MG, UID;QD, IV NOS; 32 MG, UID/QD; 15 MG, UID/QD
     Route: 042
     Dates: start: 20090921, end: 20090922
  8. VANCOMYCIN [Concomitant]
  9. VANCOMYCIN HYDROCHLORIDE [Concomitant]
  10. MICAFUNGIN SODIUM (MICAFUNGIN SODIUM) [Concomitant]
  11. AMPICILLIN [Concomitant]
  12. AMK (AMIKACIN SULFATE) [Concomitant]
  13. IMMUNE GLOBULIN (HUMAN) [Concomitant]
  14. G-CSF (GRANULOCYTE COLONY STIMULATING FACTOR) [Concomitant]
  15. PIPERACILLIN [Concomitant]
  16. MEBENDAZOLE [Concomitant]

REACTIONS (2)
  - MULTI-ORGAN FAILURE [None]
  - RENAL FAILURE [None]
